FAERS Safety Report 5202450-2 (Version None)
Quarter: 2007Q1

REPORT INFORMATION
  Report Type: 
  Country: None (occurrence: None)
  Receive Date: 20070109
  Receipt Date: 20070104
  Transmission Date: 20070707
  Serious: Yes (Death)
  Sender: FDA-Public Use
  Company Number: JP-BRISTOL-MYERS SQUIBB COMPANY-13601356

PATIENT
  Age: 75 Year
  Sex: Male

DRUGS (9)
  1. TAXOL [Suspect]
     Indication: LUNG NEOPLASM MALIGNANT
     Route: 042
     Dates: start: 20061023, end: 20061023
  2. PARAPLATIN [Suspect]
     Indication: LUNG NEOPLASM MALIGNANT
     Route: 042
     Dates: start: 20061023, end: 20061023
  3. DISOPYRAMIDE PHOSPHATE [Concomitant]
     Route: 048
  4. ASPIRIN [Concomitant]
     Route: 048
  5. FLUTICASONE PROPIONATE [Concomitant]
     Route: 055
  6. SALMETEROL XINAFOATE [Concomitant]
     Route: 055
  7. TIOTROPIUM BROMIDE [Concomitant]
     Dosage: DOSAGE FORM = CAPSULE
     Route: 055
  8. THEOPHYLLINE [Concomitant]
     Route: 048
     Dates: start: 20060913
  9. OXYCODONE HCL [Concomitant]
     Route: 048
     Dates: start: 20061004

REACTIONS (2)
  - INTERSTITIAL LUNG DISEASE [None]
  - NEUTROPHIL COUNT DECREASED [None]
